FAERS Safety Report 20126403 (Version 1)
Quarter: 2021Q4

REPORT INFORMATION
  Report Type: Spontaneous
  Country: AU (occurrence: AU)
  Receive Date: 20211129
  Receipt Date: 20211129
  Transmission Date: 20220303
  Serious: Yes (Other)
  Sender: FDA-Public Use
  Company Number: AU-SA-SAC20211125001256

PATIENT
  Age: 45 Year
  Sex: Female

DRUGS (12)
  1. FEXOFENADINE [Suspect]
     Active Substance: FEXOFENADINE HYDROCHLORIDE
     Dosage: UNK
  2. MAGNESIUM [Suspect]
     Active Substance: MAGNESIUM
     Dosage: UNK
  3. BACLOFEN [Suspect]
     Active Substance: BACLOFEN
     Dosage: UNK
  4. OLEA EUROPAEA LEAF [Suspect]
     Active Substance: OLEA EUROPAEA LEAF
     Dosage: UNK
  5. DOXYLAMINE SUCCINATE [Suspect]
     Active Substance: DOXYLAMINE SUCCINATE
     Dosage: UNK
  6. DIAZEPAM [Suspect]
     Active Substance: DIAZEPAM
     Dosage: UNK
  7. SOLIFENACIN SUCCINATE [Suspect]
     Active Substance: SOLIFENACIN SUCCINATE
     Dosage: UNK
  8. CHOLECALCIFEROL [Suspect]
     Active Substance: CHOLECALCIFEROL
     Dosage: UNK
  9. COMIRNATY [Suspect]
     Active Substance: TOZINAMERAN
     Dosage: UNK
  10. VITAMINS [Suspect]
     Active Substance: VITAMINS
     Dosage: UNK
  11. DIETARY SUPPLEMENT\PROBIOTICS [Suspect]
     Active Substance: DIETARY SUPPLEMENT\PROBIOTICS
     Dosage: UNK
  12. MAVENCLAD [Concomitant]
     Active Substance: CLADRIBINE
     Dosage: UNK

REACTIONS (5)
  - Concomitant disease aggravated [Not Recovered/Not Resolved]
  - Myalgia [Recovered/Resolved]
  - Vision blurred [Unknown]
  - Pyrexia [Recovered/Resolved]
  - Headache [Recovered/Resolved]

NARRATIVE: CASE EVENT DATE: 20210830
